FAERS Safety Report 9934574 (Version 3)
Quarter: 2014Q1

REPORT INFORMATION
  Report Type: Report from Study
  Country: CA (occurrence: CA)
  Receive Date: 20140228
  Receipt Date: 20140311
  Transmission Date: 20141002
  Serious: Yes (Hospitalization, Other)
  Sender: FDA-Public Use
  Company Number: CA-ABBVIE-14P-028-1204613-00

PATIENT
  Age: 41 Year
  Sex: Female

DRUGS (2)
  1. HUMIRA [Suspect]
     Indication: CROHN^S DISEASE
     Route: 058
     Dates: start: 20121107, end: 201402
  2. HUMIRA [Suspect]
     Route: 058
     Dates: start: 20140228

REACTIONS (2)
  - Gallbladder perforation [Recovered/Resolved]
  - Abdominal pain [Recovered/Resolved]
